FAERS Safety Report 17024152 (Version 2)
Quarter: 2019Q4

REPORT INFORMATION
  Report Type: Spontaneous
  Country: AR (occurrence: AR)
  Receive Date: 20191113
  Receipt Date: 20191205
  Transmission Date: 20200122
  Serious: Yes (Hospitalization, Other)
  Sender: FDA-Public Use
  Company Number: AR-AMGEN-ARGSP2019186661

PATIENT
  Age: 63 Year
  Sex: Female

DRUGS (8)
  1. ASPIRINETAS [Concomitant]
     Active Substance: ASPIRIN
     Dosage: 1 DOSAGE FORM, QD
  2. ENBREL [Suspect]
     Active Substance: ETANERCEPT
     Indication: RHEUMATOID ARTHRITIS
     Dosage: 50 MILLIGRAM, QWK
     Route: 065
     Dates: start: 20150616, end: 20191101
  3. PREGABALIN. [Concomitant]
     Active Substance: PREGABALIN
     Dosage: 1 DOSAGE FORM, QD
  4. OMEPRAZOL [Concomitant]
     Active Substance: OMEPRAZOLE
     Dosage: 1 DOSAGE FORM, QD
  5. INSULIN [Concomitant]
     Active Substance: INSULIN NOS
     Dosage: 1 DOSAGE FORM, TID
  6. ATORVASTATIN [Concomitant]
     Active Substance: ATORVASTATIN
     Dosage: 1 DOSAGE FORM, QD
  7. ENBREL [Suspect]
     Active Substance: ETANERCEPT
     Dosage: 50 MILLIGRAM (ONCE EVERY 10 DAYS)
     Route: 065
     Dates: start: 20191101
  8. ARTRAIT [METHOTREXATE SODIUM] [Concomitant]
     Dosage: 1 DOSAGE FORM, QWK

REACTIONS (10)
  - Bladder disorder [Recovered/Resolved]
  - Malaise [Recovered/Resolved]
  - Vomiting [Recovered/Resolved]
  - Pyrexia [Recovered/Resolved]
  - Off label use [Unknown]
  - Vesical fistula [Not Recovered/Not Resolved]
  - Diarrhoea [Recovered/Resolved]
  - Intentional product misuse [Unknown]
  - Urinary tract infection [Not Recovered/Not Resolved]
  - Liver disorder [Recovered/Resolved]

NARRATIVE: CASE EVENT DATE: 2019
